FAERS Safety Report 9691687 (Version 3)
Quarter: 2014Q3

REPORT INFORMATION
  Report Type: Report from Study
  Country: MX (occurrence: MX)
  Receive Date: 20131115
  Receipt Date: 20140808
  Transmission Date: 20150326
  Serious: Yes (Other)
  Sender: FDA-Public Use
  Company Number: MX-ABBVIE-13P-107-1169443-00

PATIENT
  Age: 53 Year
  Sex: Male

DRUGS (3)
  1. RALTEGRAVIR [Concomitant]
     Active Substance: RALTEGRAVIR
     Dosage: 1200 MG
     Route: 048
     Dates: start: 20130823, end: 20130823
  2. RITONAVIR [Suspect]
     Active Substance: RITONAVIR
     Indication: HIV INFECTION
     Route: 048
  3. RALTEGRAVIR [Concomitant]
     Active Substance: RALTEGRAVIR
     Indication: HIV INFECTION
     Dosage: 1200 MG
     Route: 048
     Dates: start: 20130816, end: 20130816

REACTIONS (2)
  - Overdose [Recovered/Resolved]
  - Overdose [Recovered/Resolved]

NARRATIVE: CASE EVENT DATE: 20130816
